FAERS Safety Report 22397219 (Version 1)
Quarter: 2023Q2

REPORT INFORMATION
  Report Type: Spontaneous
  Country: NL (occurrence: NL)
  Receive Date: 20230602
  Receipt Date: 20230602
  Transmission Date: 20230722
  Serious: Yes (Other)
  Sender: FDA-Public Use
  Company Number: None

PATIENT
  Sex: Male

DRUGS (1)
  1. SUNITINIB [Suspect]
     Active Substance: SUNITINIB
     Indication: Renal cell carcinoma
     Dosage: 50 MILLIGRAM DAILY; 1D1, SUNITINIB CAPSULE 50MG / BRAND NAME NOT SPECIFIED
     Route: 065
     Dates: start: 20230121, end: 20230207

REACTIONS (1)
  - Serous retinal detachment [Recovering/Resolving]
